FAERS Safety Report 17082166 (Version 5)
Quarter: 2022Q2

REPORT INFORMATION
  Report Type: Spontaneous
  Country: US (occurrence: US)
  Receive Date: 20191127
  Receipt Date: 20220526
  Transmission Date: 20220721
  Serious: Yes (Other)
  Sender: FDA-Public Use
  Company Number: NVSC2019US048707

PATIENT
  Age: 68 Year
  Sex: Female
  Weight: 60 kg

DRUGS (7)
  1. ARGATROBAN [Suspect]
     Active Substance: ARGATROBAN
     Indication: Heparin-induced thrombocytopenia
     Dosage: 1 UG/KG/MIN AT 1000
     Route: 042
     Dates: start: 20190723, end: 20190723
  2. ARGATROBAN [Suspect]
     Active Substance: ARGATROBAN
     Dosage: 1.1 UG/KG/MIN AT 1340
     Route: 042
     Dates: start: 20190723, end: 20190723
  3. ARGATROBAN [Suspect]
     Active Substance: ARGATROBAN
     Dosage: 1.4 UG/KG/MIN AT 1600
     Route: 042
     Dates: start: 20190723, end: 20190723
  4. ARGATROBAN [Suspect]
     Active Substance: ARGATROBAN
     Dosage: 1.65 UG/KG/MIN AT 2000
     Route: 042
     Dates: start: 20190723, end: 20190723
  5. ARGATROBAN [Suspect]
     Active Substance: ARGATROBAN
     Dosage: 1.8 UG/KG/MIN AT 2300
     Route: 042
     Dates: start: 20190723, end: 20190724
  6. ARGATROBAN [Suspect]
     Active Substance: ARGATROBAN
     Dosage: 2.4 UG/KG/MIN AT 0300
     Route: 042
     Dates: start: 20190724, end: 20190724
  7. ARGATROBAN [Suspect]
     Active Substance: ARGATROBAN
     Dosage: 2.8 UG/KG/MIN AT 0500
     Route: 042
     Dates: start: 20190724, end: 20190724

REACTIONS (1)
  - Drug resistance [Unknown]
